FAERS Safety Report 13017423 (Version 2)
Quarter: 2016Q4

REPORT INFORMATION
  Report Type: Spontaneous
  Country: DE (occurrence: DE)
  Receive Date: 20161212
  Receipt Date: 20161222
  Transmission Date: 20170207
  Serious: Yes (Hospitalization)
  Sender: FDA-Public Use
  Company Number: DE-JNJFOC-20161200358

PATIENT
  Age: 64 Year
  Sex: Female
  Weight: 54 kg

DRUGS (27)
  1. DOXAZOSIN [Concomitant]
     Active Substance: DOXAZOSIN\DOXAZOSIN MESYLATE
     Route: 048
  2. DIHYDRALAZINE SULFATE [Concomitant]
     Active Substance: DIHYDRALAZINE SULFATE
     Route: 048
  3. DARZALEX [Suspect]
     Active Substance: DARATUMUMAB
     Indication: PLASMA CELL MYELOMA
     Route: 042
     Dates: start: 20160813, end: 20160813
  4. TORASEMIDE [Concomitant]
     Active Substance: TORSEMIDE
     Route: 048
  5. MAGNESIUM [Concomitant]
     Active Substance: MAGNESIUM
     Route: 048
  6. VITARENAL [Concomitant]
     Route: 048
  7. DECOSTRIOL [Concomitant]
     Active Substance: CALCITRIOL
     Route: 048
  8. DARZALEX [Suspect]
     Active Substance: DARATUMUMAB
     Indication: PLASMA CELL MYELOMA
     Route: 042
     Dates: start: 20160909, end: 20160909
  9. DARZALEX [Suspect]
     Active Substance: DARATUMUMAB
     Indication: PLASMA CELL MYELOMA
     Route: 042
     Dates: start: 20161111, end: 20161111
  10. ACICLOVIR [Suspect]
     Active Substance: ACYCLOVIR
     Indication: ENCEPHALITIS
     Route: 048
     Dates: start: 20161110, end: 20161115
  11. COTRIM FORTE [Concomitant]
     Active Substance: SULFAMETHOXAZOLE\TRIMETHOPRIM
     Route: 048
  12. COTRIM FORTE [Concomitant]
     Active Substance: SULFAMETHOXAZOLE\TRIMETHOPRIM
     Route: 048
  13. DEKRISTOL [Concomitant]
     Active Substance: CHOLECALCIFEROL
     Route: 048
  14. L-THYROXIN [Concomitant]
     Active Substance: LEVOTHYROXINE SODIUM
     Indication: HYPOTHYROIDISM
     Dates: start: 20160603
  15. DELIX PROTECT [Concomitant]
     Route: 048
  16. METOHEXAL [Concomitant]
     Active Substance: METOPROLOL SUCCINATE
     Route: 048
  17. MOXONIDIN [Concomitant]
     Active Substance: MOXONIDINE
     Route: 048
  18. MAGNESIUM [Concomitant]
     Active Substance: MAGNESIUM
     Route: 048
  19. CALCIUM CARBONATE. [Concomitant]
     Active Substance: CALCIUM CARBONATE
     Route: 048
  20. DECOSTRIOL [Concomitant]
     Active Substance: CALCITRIOL
     Route: 048
  21. DARZALEX [Suspect]
     Active Substance: DARATUMUMAB
     Indication: PLASMA CELL MYELOMA
     Route: 042
     Dates: start: 20161007, end: 20161007
  22. DARZALEX [Suspect]
     Active Substance: DARATUMUMAB
     Indication: PLASMA CELL MYELOMA
     Route: 042
     Dates: start: 20160729, end: 20160729
  23. PANTOZOL [Concomitant]
     Active Substance: PANTOPRAZOLE SODIUM
     Route: 048
  24. LERCANIDIPINE [Concomitant]
     Active Substance: LERCANIDIPINE
     Route: 048
  25. DARZALEX [Suspect]
     Active Substance: DARATUMUMAB
     Indication: PLASMA CELL MYELOMA
     Route: 042
     Dates: start: 20160805, end: 20160805
  26. DELIX PROTECT [Concomitant]
     Route: 048
  27. CALCIUM CARBONATE. [Concomitant]
     Active Substance: CALCIUM CARBONATE
     Route: 048

REACTIONS (4)
  - Pyrexia [Not Recovered/Not Resolved]
  - Infection [Not Recovered/Not Resolved]
  - Psychotic disorder [Not Recovered/Not Resolved]
  - Personality change [Not Recovered/Not Resolved]

NARRATIVE: CASE EVENT DATE: 20161112
